FAERS Safety Report 4865729-X (Version None)
Quarter: 2005Q4

REPORT INFORMATION
  Report Type: 
  Country: None (occurrence: None)
  Receive Date: 20051223
  Receipt Date: 20051220
  Transmission Date: 20060501
  Serious: Yes (Life-Threatening)
  Sender: FDA-Public Use
  Company Number: PHBS2005IN18810

PATIENT
  Sex: Female

DRUGS (1)
  1. METHERGINE [Suspect]
     Dosage: 0.2 MG, UNK
     Route: 042

REACTIONS (2)
  - HAEMORRHAGE [None]
  - LOSS OF CONSCIOUSNESS [None]
